FAERS Safety Report 5515062-8 (Version None)
Quarter: 2007Q4

REPORT INFORMATION
  Report Type: 
  Country: None (occurrence: None)
  Receive Date: 20071113
  Receipt Date: 20061208
  Transmission Date: 20080405
  Serious: No
  Sender: FDA-Public Use
  Company Number: A0630960A

PATIENT
  Age: 68 Year
  Sex: Female

DRUGS (5)
  1. COREG [Suspect]
     Dosage: 6.25MG TWICE PER DAY
     Route: 048
     Dates: start: 20061206
  2. DIOVAN [Suspect]
     Dosage: 160MG PER DAY
     Route: 048
     Dates: start: 20061206
  3. PREVACID [Concomitant]
  4. VITAMINS [Concomitant]
  5. BUFFERIN ASA [Concomitant]

REACTIONS (3)
  - HEART RATE INCREASED [None]
  - TINNITUS [None]
  - VISUAL DISTURBANCE [None]
